FAERS Safety Report 21031555 (Version 1)
Quarter: 2022Q3

REPORT INFORMATION
  Report Type: Spontaneous
  Country: US (occurrence: None)
  Receive Date: 20220701
  Receipt Date: 20220701
  Transmission Date: 20221026
  Serious: No
  Sender: FDA-Public Use
  Company Number: US-ROCHE-2957894

PATIENT
  Age: 52 Year
  Sex: Female
  Weight: 53.572 kg

DRUGS (6)
  1. ACTEMRA [Suspect]
     Active Substance: TOCILIZUMAB
     Indication: Rheumatoid arthritis
     Dosage: STARTED MAYBE 10 YEARS AGO AND STOPPED ABOUT 3 MONTHS AGO
     Route: 042
     Dates: end: 2021
  2. ACTEMRA [Suspect]
     Active Substance: TOCILIZUMAB
     Indication: Rheumatoid arthritis
     Dosage: STARTED 5.5 WEEKS AGO, FORMULATION: 162 MG / .9ML SYRINGE
     Route: 058
     Dates: start: 202110
  3. EFFEXOR [Concomitant]
     Active Substance: VENLAFAXINE HYDROCHLORIDE
     Indication: Anxiety
     Dosage: STARTED MAYBE 15 YEARS AGO ;ONGOING: YES
     Route: 048
  4. ATORVASTATIN [Concomitant]
     Active Substance: ATORVASTATIN
     Indication: Lipids increased
     Dosage: STARTED A LONG TIME AGO AND IS NONCOMPLIANT
     Route: 048
  5. IMITREX [Concomitant]
     Active Substance: SUMATRIPTAN SUCCINATE
     Indication: Migraine
     Dosage: STARTED  MAYBE 1 YEAR AGO AS NEEDED NO MORE THAN 2 DOSES IN 24 HOURS ;ONGOING: YES
     Route: 048
  6. IMITREX [Concomitant]
     Active Substance: SUMATRIPTAN SUCCINATE
     Dosage: STARTED ABOUT 10 YEARS AGO AS NEEDED  HAS NEVER TAKEN MORE THAN 1 DOSE IN 24 HOURS ;ONGOING: YES
     Route: 058

REACTIONS (13)
  - Erythema [Recovering/Resolving]
  - Swelling [Not Recovered/Not Resolved]
  - Pyrexia [Recovered/Resolved]
  - Urticaria [Recovering/Resolving]
  - Nausea [Recovered/Resolved]
  - Diarrhoea [Recovered/Resolved]
  - Asthenia [Recovering/Resolving]
  - Vomiting [Recovered/Resolved]
  - Pain [Recovering/Resolving]
  - Lymphadenitis [Not Recovered/Not Resolved]
  - Lipids increased [Not Recovered/Not Resolved]
  - Headache [Recovered/Resolved]
  - Feeding disorder [Recovered/Resolved]

NARRATIVE: CASE EVENT DATE: 20211107
